FAERS Safety Report 23598192 (Version 6)
Quarter: 2024Q3

REPORT INFORMATION
  Report Type: Spontaneous
  Country: US (occurrence: US)
  Receive Date: 20240305
  Receipt Date: 20240827
  Transmission Date: 20241016
  Serious: No
  Sender: BAUSCH AND LOMB
  Company Number: US-BAUSCHBL-2024BNL002567

PATIENT
  Age: 77 Year
  Sex: Female

DRUGS (6)
  1. MIEBO [Suspect]
     Active Substance: PERFLUOROHEXYLOCTANE
     Indication: Dry eye
     Route: 047
     Dates: start: 202311
  2. MIEBO [Suspect]
     Active Substance: PERFLUOROHEXYLOCTANE
     Indication: Meibomian gland dysfunction
     Route: 047
  3. XIIDRA [Suspect]
     Active Substance: LIFITEGRAST
     Indication: Meibomian gland dysfunction
     Route: 065
  4. XIIDRA [Suspect]
     Active Substance: LIFITEGRAST
     Indication: Product use in unapproved indication
  5. RESTASIS [Suspect]
     Active Substance: CYCLOSPORINE
     Indication: Meibomian gland dysfunction
     Route: 065
  6. TYRVAYA [Concomitant]
     Active Substance: VARENICLINE TARTRATE
     Indication: Product used for unknown indication
     Route: 065

REACTIONS (10)
  - Eye irritation [Unknown]
  - Product use issue [Unknown]
  - Intentional product use issue [Unknown]
  - Product packaging quantity issue [Unknown]
  - Wrong dose [Unknown]
  - Product label issue [Unknown]
  - Product expiration date issue [Unknown]
  - Product dose omission issue [Unknown]
  - Product delivery mechanism issue [Unknown]
  - Product use in unapproved indication [Unknown]
